FAERS Safety Report 25867923 (Version 1)
Quarter: 2025Q4

REPORT INFORMATION
  Report Type: Spontaneous
  Country: US (occurrence: US)
  Receive Date: 20251001
  Receipt Date: 20251001
  Transmission Date: 20260117
  Serious: Yes (Death, Other)
  Sender: AMGEN
  Company Number: US-AMGEN-USASP2025193102

PATIENT
  Age: 5 Week
  Sex: Male

DRUGS (1)
  1. BLINATUMOMAB [Suspect]
     Active Substance: BLINATUMOMAB
     Indication: B-cell type acute leukaemia
     Dosage: UNK
     Route: 065

REACTIONS (9)
  - Death [Fatal]
  - Acute myelomonocytic leukaemia [Unknown]
  - Heart failure with reduced ejection fraction [Unknown]
  - Acute lymphocytic leukaemia recurrent [Unknown]
  - Differentiation syndrome [Unknown]
  - Lineage switch leukaemia [Unknown]
  - Extradural haematoma [Unknown]
  - PTPN11 gene mutation [Unknown]
  - Off label use [Unknown]
